FAERS Safety Report 7248339-9 (Version None)
Quarter: 2011Q1

REPORT INFORMATION
  Report Type: 
  Country: None (occurrence: None)
  Receive Date: 20110127
  Receipt Date: 20110120
  Transmission Date: 20110831
  Serious: Yes (Other)
  Sender: FDA-Public Use
  Company Number: PHHY2011JP04906

PATIENT
  Age: 48 Year
  Sex: Male

DRUGS (1)
  1. VOLTAREN [Suspect]
     Dosage: UNK
     Route: 054
     Dates: start: 20090901, end: 20090901

REACTIONS (1)
  - LIVER DISORDER [None]
